FAERS Safety Report 21113746 (Version 1)
Quarter: 2022Q3

REPORT INFORMATION
  Report Type: Spontaneous
  Country: US (occurrence: US)
  Receive Date: 20220721
  Receipt Date: 20220721
  Transmission Date: 20221027
  Serious: Yes (Other)
  Sender: FDA-Public Use
  Company Number: US-FreseniusKabi-FK202210019

PATIENT
  Age: 24 Year
  Sex: Male

DRUGS (7)
  1. FLUPHENAZINE DECANOATE [Suspect]
     Active Substance: FLUPHENAZINE DECANOATE
     Indication: Schizophrenia
     Dosage: FLUPHENAZINE DECANOATE
  2. BENZTROPINE [Suspect]
     Active Substance: BENZTROPINE
     Indication: Schizophrenia
  3. BENZTROPINE [Suspect]
     Active Substance: BENZTROPINE
  4. CLOZAPINE [Suspect]
     Active Substance: CLOZAPINE
     Indication: Schizophrenia
  5. LITHIUM CARBONATE [Suspect]
     Active Substance: LITHIUM CARBONATE
     Indication: Schizophrenia
  6. LITHIUM CARBONATE [Suspect]
     Active Substance: LITHIUM CARBONATE
     Route: 065
  7. TRAZODONE [Suspect]
     Active Substance: TRAZODONE HYDROCHLORIDE
     Indication: Schizophrenia

REACTIONS (4)
  - Diabetes mellitus [Unknown]
  - Diabetic ketoacidosis [Recovered/Resolved]
  - Neuroleptic malignant syndrome [Recovering/Resolving]
  - Pneumonia aspiration [Unknown]
